FAERS Safety Report 7664631-8 (Version None)
Quarter: 2011Q3

REPORT INFORMATION
  Report Type: 
  Country: None (occurrence: None)
  Receive Date: 20110806
  Receipt Date: 20110106
  Transmission Date: 20111222
  Serious: No
  Sender: FDA-Public Use
  Company Number: US-ABBOTT-11P-163-0695779-00

PATIENT
  Sex: Female
  Weight: 62.652 kg

DRUGS (5)
  1. NIASPAN [Suspect]
     Indication: BLOOD CHOLESTEROL INCREASED
     Dates: start: 20100325, end: 20100407
  2. NIASPAN [Suspect]
     Dates: start: 20101201, end: 20101215
  3. CHEMO [Concomitant]
     Indication: PRODUCT USED FOR UNKNOWN INDICATION
  4. NIASPAN [Suspect]
     Dates: start: 20101129, end: 20101201
  5. NIASPAN [Suspect]
     Dates: start: 20101215

REACTIONS (2)
  - PRURITUS [None]
  - RASH [None]
